FAERS Safety Report 11931022 (Version 9)
Quarter: 2018Q3

REPORT INFORMATION
  Report Type: Report from Study
  Country: US (occurrence: US)
  Receive Date: 20160120
  Receipt Date: 20180927
  Transmission Date: 20181010
  Serious: Yes (Other)
  Sender: FDA-Public Use
  Company Number: US-INCYTE CORPORATION-2015IN004438

PATIENT

DRUGS (44)
  1. JAKAFI [Suspect]
     Active Substance: RUXOLITINIB
     Dosage: 15 MG, BID
     Route: 048
     Dates: start: 20151221, end: 20160328
  2. JAKAFI [Suspect]
     Active Substance: RUXOLITINIB
     Dosage: 15 MG, BID
     Route: 048
  3. JAKAFI [Suspect]
     Active Substance: RUXOLITINIB
     Dosage: 15 MG, BID
     Route: 048
     Dates: start: 20160516, end: 20161103
  4. ATIVAN [Concomitant]
     Active Substance: LORAZEPAM
     Indication: ANXIETY
     Dosage: 0.5 MG, PRN
     Route: 065
     Dates: start: 2014, end: 20170906
  5. BACTROBAN [Concomitant]
     Active Substance: MUPIROCIN\MUPIROCIN CALCIUM
     Indication: SKIN LESION
     Dosage: 1 G, BID
     Route: 065
     Dates: start: 20160510, end: 20160624
  6. DOXYCYCLINE. [Concomitant]
     Active Substance: DOXYCYCLINE
     Indication: CHRONIC OBSTRUCTIVE PULMONARY DISEASE
     Dosage: 100 MG, BID
     Route: 065
     Dates: start: 20160510, end: 20160520
  7. MULTIVITAMIN                       /07504101/ [Concomitant]
     Active Substance: VITAMINS
     Indication: PRODUCT USED FOR UNKNOWN INDICATION
     Dosage: UNK
     Route: 065
  8. JAKAFI [Suspect]
     Active Substance: RUXOLITINIB
     Dosage: 10 MG, QD
     Route: 048
     Dates: start: 20151004, end: 20151112
  9. JAKAFI [Suspect]
     Active Substance: RUXOLITINIB
     Dosage: 10 MG, TID
     Route: 048
  10. JAKAFI [Suspect]
     Active Substance: RUXOLITINIB
     Dosage: 15 MG, QD
     Dates: start: 20170307, end: 20170405
  11. JAKAFI [Suspect]
     Active Substance: RUXOLITINIB
     Dosage: 15 MG, BID
     Route: 048
  12. BABY ASPIRIN [Concomitant]
     Active Substance: ASPIRIN
     Indication: ROUTINE HEALTH MAINTENANCE
     Dosage: 81 MG, QD
     Route: 065
     Dates: start: 20161104
  13. ZANTAC [Concomitant]
     Active Substance: RANITIDINE HYDROCHLORIDE
     Indication: GASTROOESOPHAGEAL REFLUX DISEASE
     Dosage: 300 MG, QD
     Route: 065
     Dates: start: 20150507
  14. BUPROPION                          /00700502/ [Concomitant]
     Active Substance: BUPROPION HYDROCHLORIDE
     Indication: SMOKING CESSATION THERAPY
     Dosage: 150 MG, BID
     Route: 065
     Dates: start: 20150604, end: 20150924
  15. JAKAFI [Suspect]
     Active Substance: RUXOLITINIB
     Dosage: 10 MG, BID
     Route: 048
     Dates: start: 201611
  16. JAKAFI [Suspect]
     Active Substance: RUXOLITINIB
     Dosage: 10 MG, BID
     Route: 048
     Dates: start: 20151113, end: 20151221
  17. JAKAFI [Suspect]
     Active Substance: RUXOLITINIB
     Dosage: 10 MG, BID
     Route: 048
     Dates: start: 20161216
  18. JAKAFI [Suspect]
     Active Substance: RUXOLITINIB
     Dosage: 15 MG, QD
     Route: 048
     Dates: start: 20170103
  19. JAKAFI [Suspect]
     Active Substance: RUXOLITINIB
     Dosage: 10 MG, TID
     Route: 048
     Dates: start: 20170106
  20. JAKAFI [Suspect]
     Active Substance: RUXOLITINIB
     Dosage: 15 MG, BID
     Route: 065
     Dates: start: 20180713
  21. ALBUTEROL. [Concomitant]
     Active Substance: ALBUTEROL
     Indication: CHRONIC OBSTRUCTIVE PULMONARY DISEASE
     Dosage: 2 PUFF, PRN
     Route: 065
     Dates: start: 20141027
  22. DEXTROMETHORPHAN HYDROBROMIDE. [Concomitant]
     Active Substance: DEXTROMETHORPHAN HYDROBROMIDE
     Indication: PRODUCT USED FOR UNKNOWN INDICATION
     Dosage: UNK
     Route: 065
  23. TESSALON [Concomitant]
     Active Substance: BENZONATATE
     Indication: CHRONIC OBSTRUCTIVE PULMONARY DISEASE
     Dosage: 100 MG, TID
     Route: 065
     Dates: start: 20160510, end: 20160531
  24. CEFAZOLIN [Concomitant]
     Active Substance: CEFAZOLIN
     Indication: PRODUCT USED FOR UNKNOWN INDICATION
     Dosage: UNK
     Route: 065
  25. JAKAFI [Suspect]
     Active Substance: RUXOLITINIB
     Dosage: 10 MG, BID
     Route: 048
     Dates: start: 20170106, end: 20170306
  26. PANTOPRAZOLE [Concomitant]
     Active Substance: PANTOPRAZOLE
     Indication: GASTROOESOPHAGEAL REFLUX DISEASE
     Dosage: 40 MG, QD
     Route: 065
     Dates: start: 20150424
  27. AMMONIUM CHLORIDE. [Concomitant]
     Active Substance: AMMONIUM CHLORIDE
     Indication: PRODUCT USED FOR UNKNOWN INDICATION
     Dosage: UNK
     Route: 065
  28. CLARITIN [Concomitant]
     Active Substance: LORATADINE
     Indication: EYE PAIN
     Dosage: 1 TABLET, QD
     Route: 048
     Dates: start: 20180802, end: 20180918
  29. STIOLTO RESPIMAT [Concomitant]
     Active Substance: OLODATEROL HYDROCHLORIDE\TIOTROPIUM BROMIDE MONOHYDRATE
     Indication: CHRONIC OBSTRUCTIVE PULMONARY DISEASE
     Dosage: 2 PUFF, QD
     Route: 065
     Dates: start: 20151124
  30. VIAGRA [Concomitant]
     Active Substance: SILDENAFIL CITRATE
     Indication: ERECTILE DYSFUNCTION
     Dosage: 100 MG, PRN
     Route: 065
     Dates: start: 20150604
  31. PREDNISONE. [Concomitant]
     Active Substance: PREDNISONE
     Indication: CHRONIC OBSTRUCTIVE PULMONARY DISEASE
     Dosage: 20 MG, QD
     Route: 065
     Dates: start: 20160510, end: 20160517
  32. JAKAFI [Suspect]
     Active Substance: RUXOLITINIB
     Dosage: 10 MG, BID
     Route: 048
     Dates: start: 20161103, end: 20170106
  33. JAKAFI [Suspect]
     Active Substance: RUXOLITINIB
     Dosage: 15 MG, BID
     Route: 048
     Dates: start: 20170406, end: 20180616
  34. ADVAIR HFA [Concomitant]
     Active Substance: FLUTICASONE PROPIONATE\SALMETEROL XINAFOATE
     Indication: CHRONIC OBSTRUCTIVE PULMONARY DISEASE
     Dosage: 1 PUFF, BID
     Route: 065
     Dates: start: 20141027, end: 20151124
  35. WELLBUTRIN [Concomitant]
     Active Substance: BUPROPION HYDROCHLORIDE
     Indication: PRODUCT USED FOR UNKNOWN INDICATION
     Dosage: UNK
     Route: 065
  36. DIFLUCAN [Concomitant]
     Active Substance: FLUCONAZOLE
     Indication: BIOPSY
     Dosage: 200 MG, QD
     Route: 065
     Dates: start: 20150925, end: 20151104
  37. DIFLUCAN [Concomitant]
     Active Substance: FLUCONAZOLE
     Indication: LARYNGITIS FUNGAL
     Dosage: 100 MG, QD
     Route: 065
     Dates: start: 20170307, end: 20170405
  38. CLOTRIMAZOLE. [Concomitant]
     Active Substance: CLOTRIMAZOLE
     Indication: OROPHARYNGITIS FUNGAL
     Dosage: 10 MG, QID
     Route: 065
     Dates: start: 20160302, end: 20160508
  39. VITAMIN D                          /00107901/ [Concomitant]
     Active Substance: ERGOCALCIFEROL
     Indication: PRODUCT USED FOR UNKNOWN INDICATION
     Dosage: UNK
     Route: 065
  40. JAKAFI [Suspect]
     Active Substance: RUXOLITINIB
     Indication: POLYCYTHAEMIA VERA
     Dosage: 10 MG, BID
     Route: 048
     Dates: start: 20150709, end: 20150925
  41. ASPIRIN. [Concomitant]
     Active Substance: ASPIRIN
     Indication: MICROEMBOLISM
     Dosage: 325 MG, QD
     Route: 065
     Dates: start: 20160705, end: 20161103
  42. BENZONATATE. [Concomitant]
     Active Substance: BENZONATATE
     Indication: COUGH
     Dosage: 100 MG, PRN
     Route: 065
     Dates: start: 20150705, end: 20180415
  43. PROAIR HFA [Concomitant]
     Active Substance: ALBUTEROL SULFATE
     Indication: PRODUCT USED FOR UNKNOWN INDICATION
     Route: 065
  44. TYLENOL [Concomitant]
     Active Substance: ACETAMINOPHEN
     Indication: PRODUCT USED FOR UNKNOWN INDICATION
     Dosage: UNK
     Route: 065

REACTIONS (24)
  - Blood count abnormal [Unknown]
  - Increased tendency to bruise [Unknown]
  - Neck pain [Recovered/Resolved]
  - Fatigue [Recovered/Resolved]
  - Seborrhoeic keratosis [Not Recovered/Not Resolved]
  - Bone pain [Recovered/Resolved]
  - Chronic obstructive pulmonary disease [Recovered/Resolved]
  - Immune system disorder [Unknown]
  - Syncope [Recovered/Resolved]
  - Dizziness [Recovered/Resolved]
  - Disturbance in attention [Not Recovered/Not Resolved]
  - Contusion [Recovered/Resolved]
  - Laryngitis fungal [Not Recovered/Not Resolved]
  - Microembolism [Not Recovered/Not Resolved]
  - Presyncope [Recovered/Resolved]
  - Drug ineffective [Unknown]
  - Bronchitis [Recovered/Resolved]
  - Halo vision [Recovered/Resolved]
  - Somnolence [Unknown]
  - Drug dose omission [Unknown]
  - Skin ulcer [Not Recovered/Not Resolved]
  - Platelet count increased [Recovering/Resolving]
  - Eye pain [Not Recovered/Not Resolved]
  - Diarrhoea [Recovered/Resolved]

NARRATIVE: CASE EVENT DATE: 20150910
